FAERS Safety Report 7699936-8 (Version None)
Quarter: 2011Q3

REPORT INFORMATION
  Report Type: 
  Country: None (occurrence: None)
  Receive Date: 20110822
  Receipt Date: 20091211
  Transmission Date: 20111222
  Serious: No
  Sender: FDA-Public Use
  Company Number: US-BAYER-200943750NA

PATIENT
  Age: 56 Year
  Sex: Female
  Weight: 63.636 kg

DRUGS (1)
  1. ANGELIQ [Suspect]
     Indication: HORMONE REPLACEMENT THERAPY
     Dosage: UNK
     Dates: start: 20091101

REACTIONS (2)
  - BREAST TENDERNESS [None]
  - VAGINAL HAEMORRHAGE [None]
